FAERS Safety Report 24440576 (Version 2)
Quarter: 2024Q4

REPORT INFORMATION
  Report Type: Report from Study
  Country: CA (occurrence: CA)
  Receive Date: 20241016
  Receipt Date: 20241202
  Transmission Date: 20250115
  Serious: Yes (Other)
  Sender: ABBVIE
  Company Number: CA-ABBVIE-5959669

PATIENT
  Age: 44 Year
  Sex: Male
  Weight: 50 kg

DRUGS (2)
  1. RINVOQ [Suspect]
     Active Substance: UPADACITINIB
     Indication: Crohn^s disease
     Route: 048
     Dates: start: 2024
  2. RINVOQ [Suspect]
     Active Substance: UPADACITINIB
     Indication: Crohn^s disease
     Dosage: LAST ADMIN DATE: 2024
     Route: 048
     Dates: start: 20240508

REACTIONS (7)
  - Anal fistula [Not Recovered/Not Resolved]
  - Diarrhoea [Not Recovered/Not Resolved]
  - Product residue present [Unknown]
  - Frequent bowel movements [Unknown]
  - Inflammation [Unknown]
  - Pouchitis [Unknown]
  - Anorectal swelling [Unknown]

NARRATIVE: CASE EVENT DATE: 20240101
